FAERS Safety Report 7569269-9 (Version None)
Quarter: 2011Q2

REPORT INFORMATION
  Report Type: 
  Country: None (occurrence: None)
  Receive Date: 20110623
  Receipt Date: 20110617
  Transmission Date: 20111010
  Serious: Yes (Death, Other)
  Sender: FDA-Public Use
  Company Number: PHHY2011KR54731

PATIENT
  Age: 56 Month

DRUGS (11)
  1. ETOPOSIDE [Concomitant]
     Dosage: UNK
  2. MELPHALAN HYDROCHLORIDE [Concomitant]
     Dosage: UNK
  3. CYCLOPHOSPHAMIDE [Concomitant]
     Dosage: UNK
  4. CYCLOSPORINE [Suspect]
     Indication: STEM CELL TRANSPLANT
     Dosage: 150-300 NG/ML
  5. IFOSFAMIDE [Concomitant]
     Dosage: UNK
  6. CARBOPLATIN [Concomitant]
     Dosage: UNK
  7. CISPLATIN [Concomitant]
  8. DOXORUBICIN HCL [Concomitant]
     Dosage: UNK
  9. FLUDARABINE PHOSPHATE [Concomitant]
     Dosage: 30 MG/M2, UNK
  10. NEUPOGEN [Concomitant]
     Dosage: 5-10 UG/KG ONCE DAILY
  11. RADIOTHERAPY [Concomitant]
     Dosage: UNK

REACTIONS (3)
  - CHRONIC GRAFT VERSUS HOST DISEASE [None]
  - NEOPLASM MALIGNANT [None]
  - ACUTE GRAFT VERSUS HOST DISEASE [None]
